FAERS Safety Report 8339416-X (Version None)
Quarter: 2012Q2

REPORT INFORMATION
  Report Type: 
  Country: None (occurrence: None)
  Receive Date: 20120502
  Receipt Date: 20120417
  Transmission Date: 20120825
  Serious: Yes (Other)
  Sender: FDA-Public Use
  Company Number: 2012MA005153

PATIENT
  Age: 18 Year
  Sex: Female

DRUGS (4)
  1. LORATADINE [Concomitant]
  2. LAMOTRIGINE [Suspect]
     Indication: PRODUCT USED FOR UNKNOWN INDICATION
  3. ETONOGESTREL (ETONOGESTREL) [Suspect]
     Indication: CONTRACEPTION
     Dosage: 68 MG; ;SC
     Route: 058
     Dates: start: 20110301
  4. LEVETIRACETAM [Suspect]
     Indication: PRODUCT USED FOR UNKNOWN INDICATION

REACTIONS (2)
  - CONVULSION [None]
  - DRUG INTERACTION [None]
